FAERS Safety Report 15100494 (Version 9)
Quarter: 2020Q3

REPORT INFORMATION
  Report Type: Other
  Country: US (occurrence: US)
  Receive Date: 20180703
  Receipt Date: 20200818
  Transmission Date: 20201102
  Serious: Yes (Hospitalization, Other)
  Sender: FDA-Public Use
  Company Number: US-ROCHE-2145610

PATIENT
  Sex: Female

DRUGS (4)
  1. CELLCEPT [Suspect]
     Active Substance: MYCOPHENOLATE MOFETIL\MYCOPHENOLATE MOFETIL HYDROCHLORIDE
     Dosage: 250 MG 1 CAP QD
     Route: 048
  2. CELLCEPT [Suspect]
     Active Substance: MYCOPHENOLATE MOFETIL\MYCOPHENOLATE MOFETIL HYDROCHLORIDE
     Indication: AUTOIMMUNE HEPATITIS
     Dosage: TAKE 1 DAILY:250MG 1 TAB QD
     Route: 048
  3. CELLCEPT [Suspect]
     Active Substance: MYCOPHENOLATE MOFETIL\MYCOPHENOLATE MOFETIL HYDROCHLORIDE
     Indication: AUTOIMMUNE HEPATITIS
     Dosage: 1 CAP BID
     Route: 048
  4. CELLCEPT [Suspect]
     Active Substance: MYCOPHENOLATE MOFETIL\MYCOPHENOLATE MOFETIL HYDROCHLORIDE
     Indication: AUTOIMMUNE HEPATITIS
     Route: 065

REACTIONS (24)
  - Spinal fracture [Unknown]
  - Intentional product use issue [Unknown]
  - Deformity [Unknown]
  - Fall [Unknown]
  - Abdominal pain upper [Unknown]
  - Stress [Unknown]
  - Hypoacusis [Unknown]
  - Ear infection [Unknown]
  - Irritable bowel syndrome [Unknown]
  - Hepatic cirrhosis [Unknown]
  - Dyspnoea [Unknown]
  - Thrombosis [Unknown]
  - Hernia [Unknown]
  - Illness [Not Recovered/Not Resolved]
  - Abdominal discomfort [Unknown]
  - Asthenia [Unknown]
  - Dysstasia [Unknown]
  - Off label use [Unknown]
  - Pulmonary thrombosis [Unknown]
  - Pain [Unknown]
  - Barrett^s oesophagus [Unknown]
  - Suicidal ideation [Unknown]
  - Visual impairment [Unknown]
  - Deafness [Unknown]
